FAERS Safety Report 9656824 (Version 1)
Quarter: 2013Q4

REPORT INFORMATION
  Report Type: Spontaneous
  Country: DE (occurrence: None)
  Receive Date: 20131028
  Receipt Date: 20131028
  Transmission Date: 20140711
  Serious: Yes (Disabling, Congenital Anomaly)
  Sender: FDA-Public Use
  Company Number: FK201304695

PATIENT
  Age: 1 Day
  Sex: Female
  Weight: 1.95 kg

DRUGS (9)
  1. FUROSEMIDE (MANUFACTURER UNKNOWN) (FUROSEMIDE) (FUROSEMIDE) [Suspect]
     Route: 064
  2. PROGRAF (TACROLIMUS) [Suspect]
     Indication: NEPHROTIC SYNDROME
     Route: 064
  3. PREDNISOLONE (PREDNISOLONE) [Suspect]
     Route: 064
  4. TORSEMIDE [Suspect]
     Indication: GLOMERULONEPHRITIS
     Route: 064
  5. FLUVASTATIN [Suspect]
     Indication: HYPERCHOLESTEROLAEMIA
     Route: 064
  6. RAMIPRIL (RAMIPRIL) [Suspect]
     Indication: GLOMERULONEPHRITIS
     Route: 064
  7. OMPERAZOLE (OMEPRAZOLE) [Concomitant]
  8. IDEOS (CALCIUM CARBONATE) [Concomitant]
  9. FOLSAURE [Suspect]

REACTIONS (11)
  - Talipes [None]
  - Cleft palate [None]
  - Patent ductus arteriosus [None]
  - Dysmorphism [None]
  - Atrial septal defect [None]
  - Premature baby [None]
  - Limb reduction defect [None]
  - Premature rupture of membranes [None]
  - Retrognathia [None]
  - Microgenia [None]
  - Maternal drugs affecting foetus [None]
